FAERS Safety Report 6786258-2 (Version None)
Quarter: 2010Q2

REPORT INFORMATION
  Report Type: 
  Country: None (occurrence: None)
  Receive Date: 20100623
  Receipt Date: 20100615
  Transmission Date: 20101027
  Serious: Yes (Other)
  Sender: FDA-Public Use
  Company Number: AU-ROCHE-709527

PATIENT
  Sex: Male

DRUGS (3)
  1. DIAZEPAM [Suspect]
     Indication: DRUG USE FOR UNKNOWN INDICATION
     Route: 065
     Dates: start: 20100407
  2. DIAZEPAM [Suspect]
     Route: 065
  3. PENICILLIN G [Suspect]
     Indication: DRUG USE FOR UNKNOWN INDICATION
     Route: 042
     Dates: start: 20100407

REACTIONS (5)
  - BLOOD IMMUNOGLOBULIN A INCREASED [None]
  - DERMATITIS BULLOUS [None]
  - HYPOTENSION [None]
  - RASH ERYTHEMATOUS [None]
  - TACHYCARDIA [None]
